FAERS Safety Report 8906382 (Version 1)
Quarter: 2012Q4

REPORT INFORMATION
  Report Type: Spontaneous
  Country: US (occurrence: None)
  Receive Date: 20121109
  Receipt Date: 20121109
  Transmission Date: 20130627
  Serious: Yes (Other)
  Sender: FDA-Public Use
  Company Number: None

PATIENT
  Age: 73 Year
  Sex: Female
  Weight: 64.86 kg

DRUGS (1)
  1. RANITIDINE 150 MG PEVA MFG [Suspect]
     Indication: ESOPHAGEAL REFLUX
     Route: 047
     Dates: start: 20120830, end: 20120929

REACTIONS (7)
  - Pulmonary congestion [None]
  - Cough [None]
  - Rash [None]
  - Pruritus [None]
  - Blister [None]
  - Asthenia [None]
  - Malaise [None]
